FAERS Safety Report 4265134-3 (Version None)
Quarter: 2004Q1

REPORT INFORMATION
  Report Type: 
  Country: None (occurrence: None)
  Receive Date: 20040106
  Receipt Date: 20040106
  Transmission Date: 20041129
  Serious: No
  Sender: FDA-Public Use
  Company Number: None

PATIENT
  Sex: Female
  Weight: 79.3795 kg

DRUGS (2)
  1. GUAIFENEX PSE [Suspect]
     Indication: NASOPHARYNGITIS
     Dosage: ONE TABLET TWICE A DAY
  2. AVELOX [Suspect]
     Dosage: ONE DAILY

REACTIONS (4)
  - APNOEA [None]
  - BLINDNESS UNILATERAL [None]
  - PHARMACEUTICAL PRODUCT COMPLAINT [None]
  - TRANSIENT ISCHAEMIC ATTACK [None]
